FAERS Safety Report 7467797-8 (Version None)
Quarter: 2011Q2

REPORT INFORMATION
  Report Type: 
  Country: None (occurrence: None)
  Receive Date: 20110509
  Receipt Date: 20110120
  Transmission Date: 20111010
  Serious: No
  Sender: FDA-Public Use
  Company Number: US-ALEXION-A201100089

PATIENT
  Sex: Male

DRUGS (8)
  1. CYCLOSPORINE [Concomitant]
     Dosage: UNK
  2. SOLIRIS [Suspect]
     Indication: PAROXYSMAL NOCTURNAL HAEMOGLOBINURIA
     Dosage: 600 MG, QW
     Route: 042
     Dates: start: 20100125, end: 20100201
  3. PREDNISONE [Concomitant]
     Indication: PROPHYLAXIS
  4. SOLIRIS [Suspect]
     Dosage: 900 MG, Q2W
     Route: 042
     Dates: start: 20100201
  5. AMLODIPINE BESYLATE [Suspect]
     Indication: HYPERTENSION
     Dosage: 5 MG, BID
     Route: 048
  6. NIASPAN [Concomitant]
     Indication: HYPERLIPIDAEMIA
     Dosage: UNK
  7. GLIPIZIDE [Concomitant]
     Indication: DIABETES MELLITUS
     Dosage: 10 MG, QD
  8. BENADRYL [Concomitant]
     Indication: PROPHYLAXIS
     Dosage: 50 MG, UNK

REACTIONS (2)
  - ORTHOSTATIC HYPOTENSION [None]
  - BLOOD PRESSURE INCREASED [None]
